FAERS Safety Report 7592629-7 (Version None)
Quarter: 2011Q3

REPORT INFORMATION
  Report Type: 
  Country: None (occurrence: None)
  Receive Date: 20110706
  Receipt Date: 20110620
  Transmission Date: 20111222
  Serious: No
  Sender: FDA-Public Use
  Company Number: US-B.I. PHARMACEUTICALS,INC./RIDGEFIELD-2011-BP-15894BP

PATIENT
  Age: 74 Year
  Sex: Male

DRUGS (6)
  1. ASPIRIN [Concomitant]
     Indication: PROPHYLAXIS
     Dosage: 81 MG
     Route: 048
  2. SIMVASTATIN [Concomitant]
     Indication: BLOOD CHOLESTEROL INCREASED
     Route: 048
  3. PRADAXA [Suspect]
     Indication: ATRIAL FIBRILLATION
     Dosage: 300 MG
     Route: 048
     Dates: start: 20110401
  4. ALTACE [Concomitant]
     Indication: HYPERTENSION
     Route: 048
  5. FLOMAX [Concomitant]
     Indication: BENIGN PROSTATIC HYPERPLASIA
     Route: 048
  6. LUTEIN [Concomitant]
     Indication: EYE DISORDER
     Route: 048

REACTIONS (1)
  - OCULAR HYPERAEMIA [None]
